FAERS Safety Report 20646145 (Version 1)
Quarter: 2022Q1

REPORT INFORMATION
  Report Type: Spontaneous
  Country: CA (occurrence: CA)
  Receive Date: 20220329
  Receipt Date: 20220329
  Transmission Date: 20220423
  Serious: Yes (Other)
  Sender: FDA-Public Use
  Company Number: CA-JNJFOC-20220352290

PATIENT
  Age: 64 Year
  Sex: Male
  Weight: 53 kg

DRUGS (15)
  1. REMICADE [Suspect]
     Active Substance: INFLIXIMAB
     Indication: Crohn^s disease
     Route: 042
  2. ATORVASTATIN [Concomitant]
     Active Substance: ATORVASTATIN
  3. BISOPROLOL [Concomitant]
     Active Substance: BISOPROLOL
  4. CALCIUM [Concomitant]
     Active Substance: CALCIUM
  5. IRON [Concomitant]
     Active Substance: IRON
  6. LOPERAMIDE [Concomitant]
     Active Substance: LOPERAMIDE
  7. PANTOPRAZOLE SODIUM [Concomitant]
     Active Substance: PANTOPRAZOLE SODIUM
  8. PENTASA [Concomitant]
     Active Substance: MESALAMINE
  9. PREDNISONE [Concomitant]
     Active Substance: PREDNISONE
  10. SODIUM PHOSPHATE [Concomitant]
     Active Substance: SODIUM PHOSPHATE
  11. SYNTHROID [Concomitant]
     Active Substance: LEVOTHYROXINE SODIUM
  12. TEMAZEPAM [Concomitant]
     Active Substance: TEMAZEPAM
  13. VITAMIN B12 [Concomitant]
     Active Substance: CYANOCOBALAMIN
  14. CHOLECALCIFEROL [Concomitant]
     Active Substance: CHOLECALCIFEROL
  15. XARELTO [Concomitant]
     Active Substance: RIVAROXABAN

REACTIONS (11)
  - Skin disorder [Unknown]
  - Poor venous access [Unknown]
  - Vein disorder [Unknown]
  - Decreased appetite [Unknown]
  - Body temperature fluctuation [Unknown]
  - Weight decreased [Unknown]
  - Weight increased [Unknown]
  - Dehydration [Unknown]
  - Arthralgia [Unknown]
  - Blood pressure fluctuation [Unknown]
  - Condition aggravated [Unknown]
